FAERS Safety Report 23288422 (Version 1)
Quarter: 2023Q4

REPORT INFORMATION
  Report Type: Report from Study
  Country: NL (occurrence: NL)
  Receive Date: 20231212
  Receipt Date: 20231212
  Transmission Date: 20240109
  Serious: Yes (Hospitalization)
  Sender: FDA-Public Use
  Company Number: NL-AstraZeneca-2023A278734

PATIENT
  Age: 5 Month
  Sex: Male
  Weight: 5.7 kg

DRUGS (1)
  1. SYNAGIS [Suspect]
     Active Substance: PALIVIZUMAB
     Indication: Premature baby
     Dosage: ONCE IN A MONTH
     Route: 030
     Dates: start: 20231011

REACTIONS (3)
  - Vomiting projectile [Recovered/Resolved]
  - Heart rate decreased [Unknown]
  - Oxygen saturation decreased [Unknown]
